FAERS Safety Report 5736898-4 (Version None)
Quarter: 2008Q2

REPORT INFORMATION
  Report Type: 
  Country: None (occurrence: None)
  Receive Date: 20080509
  Receipt Date: 20080425
  Transmission Date: 20081010
  Serious: Yes (Hospitalization)
  Sender: FDA-Public Use
  Company Number: 2007089794

PATIENT
  Sex: Female
  Weight: 2.325 kg

DRUGS (5)
  1. FRAGMIN [Suspect]
     Indication: COAGULOPATHY
     Dosage: 5000 I.U. (5000 I.U., EVERY DAY), PLACENTAL
     Route: 064
     Dates: start: 20070801, end: 20080214
  2. ENDOFOLIN (FOLIC ACID) [Suspect]
     Dosage: PLACENTAL
     Route: 064
  3. ASPIRIN [Suspect]
     Dosage: PLACENTAL
     Route: 064
  4. BUSCOPAN PLUS (HYOSCINE BUTYLBROMIDE, PARACETAMOL) [Suspect]
     Dosage: PLACENTAL
     Route: 064
     Dates: start: 20070101
  5. PROGESTERONE [Suspect]
     Dosage: PLACENTAL
     Route: 064
     Dates: start: 20070101

REACTIONS (5)
  - CAESAREAN SECTION [None]
  - JAUNDICE [None]
  - MATERNAL DRUGS AFFECTING FOETUS [None]
  - PREMATURE BABY [None]
  - UMBILICAL CORD AROUND NECK [None]
